FAERS Safety Report 11341197 (Version 1)
Quarter: 2015Q3

REPORT INFORMATION
  Report Type: Spontaneous
  Country: US (occurrence: None)
  Receive Date: 20150629
  Receipt Date: 20150629
  Transmission Date: 20151125
  Serious: No
  Sender: FDA-Public Use
  Company Number: A-NJ2014-110714

PATIENT
  Age: 60 Year
  Sex: Male

DRUGS (6)
  1. PLAQUENIL (HYDROXYCHLOROQUINE PHOSPHATE) [Concomitant]
     Active Substance: HYDROXYCHLOROQUINE SULFATE
  2. TYVASO [Concomitant]
     Active Substance: TREPROSTINIL
  3. OPSUMIT [Suspect]
     Active Substance: MACITENTAN
     Indication: COR PULMONALE CHRONIC
     Route: 048
     Dates: start: 20141120, end: 20141223
  4. PREDNISONE. [Concomitant]
     Active Substance: PREDNISONE
  5. NEXIUM [Concomitant]
     Active Substance: ESOMEPRAZOLE MAGNESIUM
  6. REVATIO (SILDENAFIL CITRATE) [Concomitant]

REACTIONS (2)
  - Inflammation [None]
  - Gait disturbance [None]

NARRATIVE: CASE EVENT DATE: 20141223
